FAERS Safety Report 7479678-4 (Version None)
Quarter: 2011Q2

REPORT INFORMATION
  Report Type: 
  Country: None (occurrence: None)
  Receive Date: 20110513
  Receipt Date: 20110502
  Transmission Date: 20111010
  Serious: Yes (Hospitalization, Other)
  Sender: FDA-Public Use
  Company Number: TR-ELI_LILLY_AND_COMPANY-TR201105000245

PATIENT
  Age: 66 Year
  Sex: Male

DRUGS (4)
  1. GEMCITABINE HYDROCHLORIDE [Suspect]
     Dosage: 1740 MG/30 MIN, UNKNOWN
     Route: 042
  2. CISPLATIN [Concomitant]
     Dosage: 70 MG/3H, UNKNOWN
     Route: 042
  3. CISPLATIN [Concomitant]
     Indication: NON-SMALL CELL LUNG CANCER
     Dosage: 70 MG, UNKNOWN
     Route: 042
  4. GEMCITABINE HYDROCHLORIDE [Suspect]
     Indication: NON-SMALL CELL LUNG CANCER
     Dosage: 1740 MG, UNKNOWN
     Route: 042

REACTIONS (2)
  - IN-STENT CORONARY ARTERY RESTENOSIS [None]
  - ACUTE MYOCARDIAL INFARCTION [None]
